FAERS Safety Report 4599639-2 (Version None)
Quarter: 2005Q1

REPORT INFORMATION
  Report Type: 
  Country: None (occurrence: None)
  Receive Date: 20050303
  Receipt Date: 20050214
  Transmission Date: 20050727
  Serious: Yes (Hospitalization)
  Sender: FDA-Public Use
  Company Number: BDI-006957

PATIENT
  Age: 50 Year
  Sex: Female

DRUGS (2)
  1. ISOVUE-370 [Suspect]
     Indication: COMPUTERISED TOMOGRAM
     Dosage: 100 MGL ONCE IV
     Route: 042
     Dates: start: 20050214, end: 20050214
  2. ISOVUE-370 [Suspect]
     Indication: PULMONARY EMBOLISM
     Dosage: 100 MGL ONCE IV
     Route: 042
     Dates: start: 20050214, end: 20050214

REACTIONS (3)
  - COMPARTMENT SYNDROME [None]
  - INJECTION SITE EXTRAVASATION [None]
  - PROCEDURAL COMPLICATION [None]
